FAERS Safety Report 5451394-X (Version None)
Quarter: 2007Q3

REPORT INFORMATION
  Report Type: 
  Country: None (occurrence: None)
  Receive Date: 20070913
  Receipt Date: 20070904
  Transmission Date: 20080115
  Serious: Yes (Hospitalization)
  Sender: FDA-Public Use
  Company Number: A0660724A

PATIENT
  Age: 60 Year
  Sex: Female
  Weight: 66.8 kg

DRUGS (6)
  1. TYKERB [Suspect]
     Indication: BREAST CANCER
     Dosage: 250MG FIVE TIMES PER DAY
     Route: 048
     Dates: start: 20070529, end: 20070626
  2. XELODA [Concomitant]
     Indication: BREAST CANCER
     Dosage: 1800MG TWICE PER DAY
     Route: 048
     Dates: start: 20070523, end: 20070626
  3. NEXIUM [Concomitant]
     Dosage: 40MG PER DAY
     Route: 048
  4. EFFEXOR [Concomitant]
     Dosage: 75MG PER DAY
  5. ZYRTEC [Concomitant]
     Indication: MULTIPLE ALLERGIES
     Dosage: 10MG TWICE PER DAY
  6. OVER COUNTER MEDICINES [Concomitant]

REACTIONS (7)
  - DIARRHOEA [None]
  - METABOLIC FUNCTION TEST ABNORMAL [None]
  - NAUSEA [None]
  - PAIN IN EXTREMITY [None]
  - PALMAR-PLANTAR ERYTHRODYSAESTHESIA SYNDROME [None]
  - RASH [None]
  - VOMITING [None]
